FAERS Safety Report 10652486 (Version 3)
Quarter: 2015Q1

REPORT INFORMATION
  Report Type: Spontaneous
  Country: US (occurrence: US)
  Receive Date: 20141215
  Receipt Date: 20150112
  Transmission Date: 20150720
  Serious: Yes (Hospitalization)
  Sender: FDA-Public Use
  Company Number: US-JNJFOC-20141208055

PATIENT
  Age: 79 Year
  Sex: Female

DRUGS (15)
  1. OMEPRAZOLE. [Concomitant]
     Active Substance: OMEPRAZOLE
  2. IMBRUVICA [Suspect]
     Active Substance: IBRUTINIB
     Indication: CHRONIC LYMPHOCYTIC LEUKAEMIA
     Route: 048
     Dates: start: 2014, end: 20141201
  3. NOVOLOG [Concomitant]
     Active Substance: INSULIN ASPART
  4. LOSARTAN [Concomitant]
     Active Substance: LOSARTAN
  5. ALDACTONE [Concomitant]
     Active Substance: SPIRONOLACTONE
  6. IMBRUVICA [Suspect]
     Active Substance: IBRUTINIB
     Indication: CHRONIC LYMPHOCYTIC LEUKAEMIA
     Route: 048
     Dates: start: 20140508, end: 2014
  7. NORVASC [Concomitant]
     Active Substance: AMLODIPINE BESYLATE
  8. PLAVIX [Concomitant]
     Active Substance: CLOPIDOGREL BISULFATE
  9. MINOXIDIL. [Concomitant]
     Active Substance: MINOXIDIL
  10. ZOLOFT [Concomitant]
     Active Substance: SERTRALINE HYDROCHLORIDE
  11. KCL [Concomitant]
     Active Substance: POTASSIUM CHLORIDE
  12. LANTUS [Concomitant]
     Active Substance: INSULIN GLARGINE
  13. ALLOPURINOL. [Concomitant]
     Active Substance: ALLOPURINOL
  14. METOPROLOL [Concomitant]
     Active Substance: METOPROLOL
  15. LASIX [Concomitant]
     Active Substance: FUROSEMIDE

REACTIONS (5)
  - Fatigue [Unknown]
  - Weight decreased [Unknown]
  - Decreased appetite [Unknown]
  - Pancreatitis [Recovered/Resolved]
  - Urinary tract infection [Unknown]

NARRATIVE: CASE EVENT DATE: 2014
